FAERS Safety Report 10204128 (Version 1)
Quarter: 2014Q2

REPORT INFORMATION
  Report Type: Spontaneous
  Country: IE (occurrence: IE)
  Receive Date: 20140529
  Receipt Date: 20140529
  Transmission Date: 20141212
  Serious: Yes (Hospitalization, Other)
  Sender: FDA-Public Use
  Company Number: IE-ABBVIE-14P-229-1240305-00

PATIENT
  Sex: Female

DRUGS (1)
  1. HUMIRA [Suspect]
     Indication: RHEUMATOID ARTHRITIS
     Route: 058
     Dates: start: 20090209

REACTIONS (4)
  - Aneurysm [Recovering/Resolving]
  - Visual impairment [Recovered/Resolved]
  - Speech disorder [Recovered/Resolved]
  - Cerebrovascular accident [Recovering/Resolving]
